FAERS Safety Report 14440548 (Version 2)
Quarter: 2021Q1

REPORT INFORMATION
  Report Type: Spontaneous
  Country: US (occurrence: US)
  Receive Date: 20180125
  Receipt Date: 20210201
  Transmission Date: 20210419
  Serious: No
  Sender: FDA-Public Use
  Company Number: US-ABBVIE-17K-163-1982845-00

PATIENT
  Sex: Male

DRUGS (1)
  1. HUMIRA [Suspect]
     Active Substance: ADALIMUMAB
     Indication: PSORIATIC ARTHROPATHY
     Route: 058

REACTIONS (7)
  - Psoriatic arthropathy [Unknown]
  - Gait inability [Unknown]
  - Arthropathy [Unknown]
  - Drug ineffective [Unknown]
  - Injection site pain [Unknown]
  - Frustration tolerance decreased [Unknown]
  - Mobility decreased [Unknown]
